FAERS Safety Report 12822070 (Version 2)
Quarter: 2016Q4

REPORT INFORMATION
  Report Type: Spontaneous
  Country: GB (occurrence: GB)
  Receive Date: 20161007
  Receipt Date: 20161025
  Transmission Date: 20170207
  Serious: Yes (Death, Other)
  Sender: FDA-Public Use
  Company Number: GB-SUN PHARMACEUTICAL INDUSTRIES LTD-2016RR-125190

PATIENT
  Age: 80 Year
  Sex: Male
  Weight: 93 kg

DRUGS (2)
  1. ASPIRIN. [Suspect]
     Active Substance: ASPIRIN
     Indication: AORTIC ANEURYSM
     Dosage: NOT KNOWN
     Route: 048
     Dates: start: 20160201, end: 20160407
  2. ATORVASTATIN [Suspect]
     Active Substance: ATORVASTATIN
     Indication: AORTIC ANEURYSM
     Dosage: NOT KNOWN
     Route: 048
     Dates: start: 20160201, end: 20160407

REACTIONS (7)
  - Laryngeal oedema [Fatal]
  - Local swelling [Not Recovered/Not Resolved]
  - Lip swelling [Not Recovered/Not Resolved]
  - Peripheral swelling [Not Recovered/Not Resolved]
  - Circulatory collapse [Fatal]
  - Obstructive airways disorder [Fatal]
  - Swollen tongue [Not Recovered/Not Resolved]

NARRATIVE: CASE EVENT DATE: 20160201
